FAERS Safety Report 11036266 (Version 2)
Quarter: 2015Q2

REPORT INFORMATION
  Report Type: Spontaneous
  Country: US (occurrence: US)
  Receive Date: 20150415
  Receipt Date: 20150525
  Transmission Date: 20150821
  Serious: Yes (Hospitalization)
  Sender: FDA-Public Use
  Company Number: US-JNJFOC-20130312106

PATIENT
  Age: 53 Year
  Sex: Male
  Weight: 90.72 kg

DRUGS (3)
  1. RIVAROXABAN [Suspect]
     Active Substance: RIVAROXABAN
     Indication: ARTHROSCOPY
     Route: 048
     Dates: start: 20120922, end: 20121005
  2. RIVAROXABAN [Suspect]
     Active Substance: RIVAROXABAN
     Indication: KNEE ARTHROPLASTY
     Route: 048
     Dates: start: 20120922, end: 20121005
  3. RIVAROXABAN [Suspect]
     Active Substance: RIVAROXABAN
     Indication: THROMBOSIS PROPHYLAXIS
     Route: 048
     Dates: start: 20120922, end: 20121005

REACTIONS (1)
  - Wound haematoma [Unknown]

NARRATIVE: CASE EVENT DATE: 20121016
